FAERS Safety Report 12758294 (Version 1)
Quarter: 2016Q3

REPORT INFORMATION
  Report Type: Spontaneous
  Country: US (occurrence: US)
  Receive Date: 20160916
  Receipt Date: 20160916
  Transmission Date: 20161109
  Serious: Yes (Hospitalization)
  Sender: FDA-Public Use
  Company Number: None

PATIENT
  Age: 67 Year
  Sex: Male
  Weight: 98.3 kg

DRUGS (2)
  1. NAFCILLIN [Suspect]
     Active Substance: NAFCILLIN\NAFCILLIN SODIUM
     Indication: ARTHRITIS INFECTIVE
     Dosage: OTHER STRENGTH:;OTHER DOSE:;OTHER FREQUENCY:EVERY 4 HOURS;OTHER ROUTE:
     Route: 041
     Dates: start: 20160825, end: 20160831
  2. NAFCILLIN [Suspect]
     Active Substance: NAFCILLIN\NAFCILLIN SODIUM
     Indication: DEVICE RELATED INFECTION
     Dosage: OTHER STRENGTH:;OTHER DOSE:;OTHER FREQUENCY:EVERY 4 HOURS;OTHER ROUTE:
     Route: 041
     Dates: start: 20160825, end: 20160831

REACTIONS (2)
  - Acute kidney injury [None]
  - Tubulointerstitial nephritis [None]

NARRATIVE: CASE EVENT DATE: 20160831
